FAERS Safety Report 26207974 (Version 1)
Quarter: 2025Q4

REPORT INFORMATION
  Report Type: Spontaneous
  Country: US (occurrence: US)
  Receive Date: 20251229
  Receipt Date: 20251229
  Transmission Date: 20260117
  Serious: Yes (Other)
  Sender: AIMMUNE
  Company Number: US-AIMMUNE THERAPEUTICS, INC.-2025NEST01362

PATIENT

DRUGS (17)
  1. VOWST [Suspect]
     Active Substance: DONOR HUMAN STOOL SPORES (ETHANOL TREATED)
     Indication: Clostridium difficile infection
     Dosage: UNK, TOOK 2 DAYS OF VOWST
     Route: 048
     Dates: start: 20251207, end: 20251208
  2. VOWST [Suspect]
     Active Substance: DONOR HUMAN STOOL SPORES (ETHANOL TREATED)
     Dosage: UNK, ONCE, LAST DOSE PRIOR TO EVENT
     Route: 048
     Dates: start: 20251208, end: 20251208
  3. BACLOFEN [Concomitant]
     Active Substance: BACLOFEN
     Indication: Musculoskeletal stiffness
     Dosage: 20 MG, 3X/DAY, TABLET, BY MOUTH
     Route: 048
  4. CETIRIZINE [Concomitant]
     Active Substance: CETIRIZINE HYDROCHLORIDE
     Indication: Allergic sinusitis
     Dosage: 10 MG, 1X/DAY, TABLET
  5. CITALOPRAM [Concomitant]
     Active Substance: CITALOPRAM
     Indication: Product used for unknown indication
     Dosage: 10 MG, 1X/DAY, TABLET
  6. ROSUVASTATIN [Concomitant]
     Active Substance: ROSUVASTATIN
     Indication: Blood cholesterol increased
     Dosage: 5 MG, 1X/DAY, AT BEDTIME
     Route: 048
  7. FAMOTIDINE [Concomitant]
     Active Substance: FAMOTIDINE
     Indication: Abdominal symptom
     Dosage: 20 MG, 2X/DAY, TABLET BY MOUTH
     Route: 048
  8. TACROLIMUS [Concomitant]
     Active Substance: TACROLIMUS
     Indication: Heart transplant rejection
     Dosage: 1 MG CAPSULES. 1 CAPSULE BY MOUTH EVERY MORNING AND 2 CAPSULES EVERY EVENING
     Dates: start: 2010
  9. GABAPENTIN [Concomitant]
     Active Substance: GABAPENTIN
     Indication: Cerebrovascular accident
     Dosage: 400 MG, 2X/DAY
  10. SIROLIMUS [Concomitant]
     Active Substance: SIROLIMUS
     Indication: Heart transplant rejection
     Dosage: 2 TABLETS, 1X/DAY, 1 MG TABLET
  11. METOPROLOL [Concomitant]
     Active Substance: METOPROLOL
     Indication: Product used for unknown indication
     Dosage: 50 MG, 2X/DAY, TABLET
     Route: 048
  12. HYDROCORTISONE [Concomitant]
     Active Substance: HYDROCORTISONE
     Indication: Product used for unknown indication
     Dosage: 1% CREAM
  13. NIZORAL [Concomitant]
     Active Substance: KETOCONAZOLE
     Indication: Product used for unknown indication
     Dosage: 2% CREAM
  14. MUPIROCIN [Concomitant]
     Active Substance: MUPIROCIN
     Indication: Product used for unknown indication
     Dosage: 2% OINTMENT
  15. GLYCOLAX [Concomitant]
     Active Substance: POLYETHYLENE GLYCOL 3350
     Indication: Product used for unknown indication
     Dosage: 17  GRAM PWPK
  16. TRIAMCINOLONE [Concomitant]
     Active Substance: TRIAMCINOLONE
     Indication: Product used for unknown indication
     Dosage: 0.025% CREAM
  17. VANCOMYCIN [Concomitant]
     Active Substance: VANCOMYCIN
     Indication: Product used for unknown indication
     Dosage: 125 MG CAPSULE

REACTIONS (6)
  - Clostridium difficile infection [Not Recovered/Not Resolved]
  - Clostridium test positive [Not Recovered/Not Resolved]
  - Abnormal faeces [Not Recovered/Not Resolved]
  - Product communication issue [Unknown]
  - Diarrhoea [Not Recovered/Not Resolved]
  - Drug ineffective [Not Recovered/Not Resolved]

NARRATIVE: CASE EVENT DATE: 20251205
